FAERS Safety Report 7152542-6 (Version None)
Quarter: 2010Q4

REPORT INFORMATION
  Report Type: 
  Country: None (occurrence: None)
  Receive Date: 20101126
  Receipt Date: 20101115
  Transmission Date: 20110411
  Serious: Yes (Hospitalization)
  Sender: FDA-Public Use
  Company Number: AXC-2010-000303

PATIENT
  Age: 63 Year
  Sex: Male

DRUGS (3)
  1. MESALAMINE [Suspect]
     Indication: COLITIS ULCERATIVE
     Dosage: 1000 MG BID, RECTAL
     Route: 054
  2. METHYLPREDNISOLONE [Suspect]
     Indication: COLITIS ULCERATIVE
     Dosage: 30 MG, TID, INTRAVENOUS
     Route: 042
  3. ENOXAPARIN SODIUM [Concomitant]

REACTIONS (4)
  - AORTIC THROMBOSIS [None]
  - FEMORAL PULSE DECREASED [None]
  - NO THERAPEUTIC RESPONSE [None]
  - PAIN IN EXTREMITY [None]
